FAERS Safety Report 23415201 (Version 4)
Quarter: 2024Q2

REPORT INFORMATION
  Report Type: Spontaneous
  Country: US (occurrence: US)
  Receive Date: 20240118
  Receipt Date: 20240411
  Transmission Date: 20240716
  Serious: Yes (Other)
  Sender: FDA-Public Use
  Company Number: US-SAREPTA THERAPEUTICS INC.-SRP2024-004239

PATIENT
  Age: 11 Year
  Sex: Male

DRUGS (3)
  1. VYONDYS 53 [Suspect]
     Active Substance: GOLODIRSEN
     Indication: Duchenne muscular dystrophy
     Dosage: 30 MILLIGRAM/KILOGRAM,, WEEKLY
     Dates: start: 20201014
  2. DEFLAZACORT [Concomitant]
     Active Substance: DEFLAZACORT
     Indication: Product used for unknown indication
     Dosage: 30 MILLIGRAM, QD
     Dates: start: 201712
  3. ENALAPRIL [Concomitant]
     Active Substance: ENALAPRIL
     Indication: Cardiovascular event prophylaxis
     Dosage: 5 MILLIGRAM, QD
     Dates: start: 201801

REACTIONS (2)
  - Spinal compression fracture [Unknown]
  - Scoliosis [Unknown]

NARRATIVE: CASE EVENT DATE: 20230822
